FAERS Safety Report 15006156 (Version 2)
Quarter: 2018Q2

REPORT INFORMATION
  Report Type: Report from Study
  Country: US (occurrence: US)
  Receive Date: 20180613
  Receipt Date: 20180614
  Transmission Date: 20180711
  Serious: No
  Sender: FDA-Public Use
  Company Number: US-US WORLDMEDS, LLC-USW201704-000592

PATIENT
  Age: 71 Year
  Sex: Female
  Weight: 79.37 kg

DRUGS (10)
  1. OMEPRAZOLE. [Concomitant]
     Active Substance: OMEPRAZOLE
     Dates: start: 2007
  2. DUOPA [Concomitant]
     Active Substance: CARBIDOPA\LEVODOPA
     Dates: start: 201405
  3. TIZANIDINE. [Concomitant]
     Active Substance: TIZANIDINE
     Dates: start: 2016
  4. TRAMADOL. [Concomitant]
     Active Substance: TRAMADOL
     Dates: start: 2016
  5. METFORMIN [Concomitant]
     Active Substance: METFORMIN HYDROCHLORIDE
     Dates: start: 2007
  6. GABAPENTIN. [Concomitant]
     Active Substance: GABAPENTIN
     Dates: start: 2007
  7. APOKYN [Suspect]
     Active Substance: APOMORPHINE HYDROCHLORIDE
     Indication: PARKINSON^S DISEASE
     Route: 058
     Dates: start: 20170419
  8. FUROSEMIDE. [Concomitant]
     Active Substance: FUROSEMIDE
     Dates: start: 201406
  9. POTASSIUM [Concomitant]
     Active Substance: POTASSIUM
     Dates: start: 201406
  10. LOSARTAN. [Concomitant]
     Active Substance: LOSARTAN
     Dates: start: 2007

REACTIONS (5)
  - Muscle spasms [Recovered/Resolved]
  - Pain in extremity [Recovered/Resolved]
  - Somnolence [Recovered/Resolved]
  - Tremor [Recovered/Resolved]
  - Yawning [Recovered/Resolved]

NARRATIVE: CASE EVENT DATE: 20170419
